FAERS Safety Report 4777705-6 (Version None)
Quarter: 2005Q3

REPORT INFORMATION
  Report Type: 
  Country: None (occurrence: None)
  Receive Date: 20050921
  Receipt Date: 20050907
  Transmission Date: 20060218
  Serious: Yes (Other)
  Sender: FDA-Public Use
  Company Number: US_0503113647

PATIENT
  Age: 48 Year
  Sex: Female
  Weight: 45 kg

DRUGS (9)
  1. ZYPREXA [Suspect]
     Indication: DEPRESSION
     Dosage: 10 MG
     Dates: start: 19990101, end: 20010101
  2. NORVASC [Concomitant]
  3. LISINOPRIL [Concomitant]
  4. ENALAPRIL [Concomitant]
  5. BUPROPION [Concomitant]
  6. FLUOXETINE [Concomitant]
  7. PAROXETINE [Concomitant]
  8. SERTRALINE HCL [Concomitant]
  9. INSULIN [Concomitant]

REACTIONS (7)
  - DIABETES MELLITUS [None]
  - DIABETIC COMA [None]
  - DIABETIC KETOACIDOSIS [None]
  - HEPATITIS VIRAL [None]
  - HYPERINSULINAEMIA [None]
  - PANCREATITIS [None]
  - VISION BLURRED [None]
